FAERS Safety Report 7019291-6 (Version None)
Quarter: 2010Q3

REPORT INFORMATION
  Report Type: 
  Country: None (occurrence: None)
  Receive Date: 20100923
  Receipt Date: 20100914
  Transmission Date: 20110219
  Serious: Yes (Other)
  Sender: FDA-Public Use
  Company Number: 695230

PATIENT
  Sex: Female

DRUGS (5)
  1. LEUCOVORIN CALCIUM [Suspect]
     Indication: COLON CANCER STAGE III
     Dosage: INTRAVENOUS DRIP
     Route: 041
     Dates: end: 20100107
  2. ELOXATIN [Suspect]
     Indication: COLON CANCER STAGE III
     Dosage: INTRAVENOUS DRIP
     Route: 041
     Dates: end: 20100107
  3. FLUOROURACIL [Suspect]
     Indication: COLON CANCER STAGE III
     Dosage: INTRAVENOUS DRIP
     Route: 041
     Dates: end: 20100107
  4. DEXAMETHASONE [Concomitant]
  5. DIPHENHYDRAMINE HCL INJ., USP [Concomitant]

REACTIONS (5)
  - DYSKINESIA [None]
  - MUSCLE SPASMS [None]
  - MUSCLE TWITCHING [None]
  - RASH [None]
  - THROAT TIGHTNESS [None]
